FAERS Safety Report 8280871-1 (Version None)
Quarter: 2012Q2

REPORT INFORMATION
  Report Type: 
  Country: None (occurrence: None)
  Receive Date: 20120412
  Receipt Date: 20120410
  Transmission Date: 20120825
  Serious: Yes (Hospitalization, Other)
  Sender: FDA-Public Use
  Company Number: GB-ABBOTT-11P-167-0880947-00

PATIENT
  Sex: Female
  Weight: 87 kg

DRUGS (6)
  1. MELOXICAM [Concomitant]
     Indication: RHEUMATOID ARTHRITIS
  2. OMEPRAZOLE [Concomitant]
     Indication: PROPHYLAXIS AGAINST GASTROINTESTINAL ULCER
  3. BENDROFLUAZIDE [Concomitant]
     Indication: HYPERTENSION
     Route: 048
  4. LISINOPRIL [Concomitant]
     Indication: HYPERTENSION
  5. HUMIRA [Suspect]
     Indication: RHEUMATOID ARTHRITIS
     Route: 058
     Dates: start: 20081001
  6. METHOTREXATE [Concomitant]
     Indication: RHEUMATOID ARTHRITIS

REACTIONS (5)
  - LOWER RESPIRATORY TRACT INFECTION [None]
  - GASTRIC INFECTION [None]
  - OROPHARYNGEAL PAIN [None]
  - PNEUMONIA [None]
  - CHEST PAIN [None]
